FAERS Safety Report 17762446 (Version 2)
Quarter: 2020Q3

REPORT INFORMATION
  Report Type: Spontaneous
  Country: JP (occurrence: JP)
  Receive Date: 20200508
  Receipt Date: 20200908
  Transmission Date: 20201102
  Serious: Yes (Other)
  Sender: FDA-Public Use
  Company Number: JP-PFIZER INC-2020177784

PATIENT
  Age: 53 Year
  Sex: Male

DRUGS (16)
  1. RIFABUTIN. [Suspect]
     Active Substance: RIFABUTIN
     Indication: TUBERCULOSIS
     Dosage: UNK
  2. STREPTOMYCIN [Concomitant]
     Active Substance: STREPTOMYCIN SULFATE
     Indication: TUBERCULOSIS
     Dosage: 750 MG
     Dates: start: 201201, end: 201204
  3. AMINOSALICYLIC ACID [Concomitant]
     Active Substance: AMINOSALICYLIC ACID
     Indication: TUBERCULOSIS
     Dosage: 11 G
     Dates: start: 201301, end: 201605
  4. RIFAMPICIN [Suspect]
     Active Substance: RIFAMPIN
     Indication: TUBERCULOSIS
     Dosage: 450 MG
     Dates: start: 201201, end: 201210
  5. ISONIAZID. [Suspect]
     Active Substance: ISONIAZID
     Dosage: 500 MG
     Dates: start: 201403, end: 201605
  6. CYCLOSERINE. [Concomitant]
     Active Substance: CYCLOSERINE
     Indication: TUBERCULOSIS
     Dosage: 500 MG
     Dates: start: 201301, end: 201304
  7. ISONIAZID. [Suspect]
     Active Substance: ISONIAZID
     Dosage: 200 MG
     Dates: start: 201203, end: 201209
  8. ETHAMBUTOL [Concomitant]
     Active Substance: ETHAMBUTOL HYDROCHLORIDE
     Indication: TUBERCULOSIS
     Dosage: 750 MG
     Dates: start: 201203, end: 201204
  9. ETHAMBUTOL [Concomitant]
     Active Substance: ETHAMBUTOL HYDROCHLORIDE
     Dosage: 750 MG
     Dates: start: 201301, end: 201606
  10. KANAMYCIN [Concomitant]
     Active Substance: KANAMYCIN A SULFATE
     Indication: TUBERCULOSIS
     Dosage: 750 MG
     Dates: start: 201301, end: 201605
  11. ISONIAZID. [Suspect]
     Active Substance: ISONIAZID
     Dosage: 300 MG
     Dates: start: 201209, end: 201605
  12. PYRAZINAMIDE. [Concomitant]
     Active Substance: PYRAZINAMIDE
     Indication: TUBERCULOSIS
     Dosage: 1200 MG
     Dates: start: 201301, end: 201309
  13. CLARITHROMYCIN. [Concomitant]
     Active Substance: CLARITHROMYCIN
     Indication: TUBERCULOSIS
     Dosage: 400 MG
     Dates: start: 201209, end: 201210
  14. LEVOFLOXACIN. [Suspect]
     Active Substance: LEVOFLOXACIN
     Indication: TUBERCULOSIS
     Dosage: 500 MG
     Dates: start: 201210, end: 201605
  15. ISONIAZID. [Suspect]
     Active Substance: ISONIAZID
     Indication: TUBERCULOSIS
     Dosage: 300 MG
     Dates: start: 201201, end: 201203
  16. CYCLOSERINE. [Concomitant]
     Active Substance: CYCLOSERINE
     Dosage: 500 MG
     Dates: start: 201606

REACTIONS (2)
  - Drug resistance [Unknown]
  - Treatment noncompliance [Unknown]
